FAERS Safety Report 20108971 (Version 3)
Quarter: 2021Q4

REPORT INFORMATION
  Report Type: Spontaneous
  Country: ES (occurrence: ES)
  Receive Date: 20211124
  Receipt Date: 20211207
  Transmission Date: 20220303
  Serious: Yes (Hospitalization, Other)
  Sender: FDA-Public Use
  Company Number: ES-Accord-238838

PATIENT
  Age: 26 Year
  Sex: Female

DRUGS (22)
  1. AZACITIDINE [Interacting]
     Active Substance: AZACITIDINE
     Indication: Acute myeloid leukaemia
     Dosage: UNK UNK, CYCLE
     Dates: start: 202010
  2. AZACITIDINE [Interacting]
     Active Substance: AZACITIDINE
     Dosage: UNK, CYCLE
     Dates: start: 202007
  3. AZACITIDINE [Interacting]
     Active Substance: AZACITIDINE
     Dosage: 100 MILLIGRAM, CYCLE (RESTART AZA+VEN TREATMENT (THIRD CYCLE).)
     Dates: start: 202007
  4. AZACITIDINE [Interacting]
     Active Substance: AZACITIDINE
     Dosage: 75 MILLIGRAM/SQ. METER, CYCLE (DAYS 1?7 OF EACH 28 DAY CYCLE)
     Dates: start: 202007
  5. AZACITIDINE [Interacting]
     Active Substance: AZACITIDINE
     Dosage: UNK UNK, CYCLE (THIRD CYCLE)
     Dates: start: 2021
  6. AZACITIDINE [Interacting]
     Active Substance: AZACITIDINE
     Dosage: UNK UNK, QD (REINITIATED AT A DOSE OF 100 MG/DAY)
  7. AZACITIDINE [Interacting]
     Active Substance: AZACITIDINE
     Dosage: 75 MILLIGRAM/SQ. METER, CYCLE (TWO CYCLES)
     Dates: start: 202011
  8. AZACITIDINE [Interacting]
     Active Substance: AZACITIDINE
     Dosage: 100 MILLIGRAM, DAILY
     Route: 065
  9. FLUDARABINE [Interacting]
     Active Substance: FLUDARABINE PHOSPHATE
     Indication: Acute myeloid leukaemia
     Dosage: UNK
  10. VENETOCLAX [Interacting]
     Active Substance: VENETOCLAX
     Indication: Acute myeloid leukaemia
     Dosage: UNK (UPTITRATED FROM 100 MG DAILY TO A MAXIMUM DOSE OF 400 MG)
  11. VENETOCLAX [Interacting]
     Active Substance: VENETOCLAX
     Dosage: UNK (DOSE WAS UPTITRATED FROM 50 MG TO A MAXIMUM DOSAGE OF 70 MG)
  12. VENETOCLAX [Interacting]
     Active Substance: VENETOCLAX
     Dosage: UNK (50MG TO 70MG)
  13. VENETOCLAX [Interacting]
     Active Substance: VENETOCLAX
     Dosage: 100 MILLIGRAM, QD (100MG DAILY TO 400MG)
     Dates: start: 202010
  14. VENETOCLAX [Interacting]
     Active Substance: VENETOCLAX
     Dosage: 100 MILLIGRAM, QD (NEXT CYCLE)
     Dates: start: 2021
  15. VENETOCLAX [Interacting]
     Active Substance: VENETOCLAX
     Dosage: UNK (TWO CYCLES)
     Route: 065
     Dates: start: 202011
  16. VENETOCLAX [Interacting]
     Active Substance: VENETOCLAX
     Dosage: 50 MILLIGRAM (THIRD CYCLE: DOSE UP TITRATED TO 70MG)
     Route: 065
     Dates: start: 2021
  17. FILGRASTIM [Suspect]
     Active Substance: FILGRASTIM
     Indication: Acute myeloid leukaemia
     Dosage: UNK
  18. QUIZARTINIB [Suspect]
     Active Substance: QUIZARTINIB
     Indication: Acute myeloid leukaemia
     Dosage: 40 MILLIGRAM
     Route: 065
  19. IDARUBICIN [Suspect]
     Active Substance: IDARUBICIN
     Indication: Acute myeloid leukaemia
     Dosage: UNK
  20. CYTARABINE [Suspect]
     Active Substance: CYTARABINE
     Indication: Acute myeloid leukaemia
     Dosage: UNK (HIGH DOSE)
  21. CYTARABINE [Suspect]
     Active Substance: CYTARABINE
     Dosage: UNK
  22. POSACONAZOLE [Interacting]
     Active Substance: POSACONAZOLE
     Indication: Antifungal prophylaxis
     Dosage: UNK (POSACONAZOLE WAS REINSTATED.)

REACTIONS (11)
  - Paronychia [Recovered/Resolved]
  - Asthenia [Unknown]
  - Febrile neutropenia [Unknown]
  - Myelosuppression [Unknown]
  - Drug interaction [Unknown]
  - Drug ineffective [Unknown]
  - Bronchopulmonary aspergillosis [Unknown]
  - Graft versus host disease in skin [Unknown]
  - Localised infection [Unknown]
  - Pyrexia [Unknown]
  - Disease progression [Unknown]
